FAERS Safety Report 5978525-7 (Version None)
Quarter: 2008Q4

REPORT INFORMATION
  Report Type: 
  Country: None (occurrence: None)
  Receive Date: 20081204
  Receipt Date: 20080818
  Transmission Date: 20090506
  Serious: No
  Sender: FDA-Public Use
  Company Number: US-BAYER-200810627BCC

PATIENT
  Age: 84 Year
  Sex: Female
  Weight: 65 kg

DRUGS (9)
  1. ALEVE (CAPLET) [Suspect]
     Indication: BACK PAIN
     Dosage: TOTAL DAILY DOSE: 440 MG  UNIT DOSE: 220 MG
     Route: 048
     Dates: start: 20080122
  2. ASPIRIN [Suspect]
     Indication: DRUG USE FOR UNKNOWN INDICATION
  3. SYNTHROID [Concomitant]
  4. DIOVAN [Concomitant]
  5. FOLGARD [Concomitant]
  6. FOSAMAX [Concomitant]
  7. DETROL [Concomitant]
  8. SIMVASTATIN [Concomitant]
  9. SKELAXIN [Concomitant]

REACTIONS (3)
  - DRY MOUTH [None]
  - LIP DRY [None]
  - THIRST [None]
